FAERS Safety Report 12969093 (Version 1)
Quarter: 2016Q4

REPORT INFORMATION
  Report Type: Spontaneous
  Country: CO (occurrence: CO)
  Receive Date: 20161123
  Receipt Date: 20161123
  Transmission Date: 20170207
  Serious: Yes (Hospitalization)
  Sender: FDA-Public Use
  Company Number: CO-SCIEGEN PHARMACEUTICALS INC-2016SCILIT00578

PATIENT
  Age: 61 Year
  Sex: Male

DRUGS (5)
  1. VALPROIC ACID. [Concomitant]
     Active Substance: VALPROIC ACID
     Indication: PRODUCT USED FOR UNKNOWN INDICATION
     Dosage: 250 MG EVERY 8 HOURS
     Route: 065
     Dates: start: 2014, end: 2014
  2. LOSARTAN. [Concomitant]
     Active Substance: LOSARTAN
     Indication: PRODUCT USED FOR UNKNOWN INDICATION
     Dosage: 100 MG EVERY 12 HOURS
     Route: 065
  3. ATORVASTATIN [Concomitant]
     Active Substance: ATORVASTATIN
     Indication: PRODUCT USED FOR UNKNOWN INDICATION
     Dosage: 40 MG PER DAY
     Route: 065
  4. NIFEDIPINE. [Concomitant]
     Active Substance: NIFEDIPINE
     Indication: PRODUCT USED FOR UNKNOWN INDICATION
     Dosage: 30 MG EVERY 12 HOURS
     Route: 065
  5. LAMOTRIGINE TABLETS [Suspect]
     Active Substance: LAMOTRIGINE
     Indication: PRODUCT USED FOR UNKNOWN INDICATION
     Dosage: 30 MG EVERY 08 HOURS
     Route: 065

REACTIONS (19)
  - Odynophagia [Unknown]
  - Breath odour [Unknown]
  - Pyrexia [Unknown]
  - Malaise [Unknown]
  - Hallucination [Unknown]
  - Blood pressure increased [Unknown]
  - Coagulation time prolonged [Unknown]
  - Ocular icterus [Unknown]
  - Encephalopathy [Unknown]
  - Disorientation [Unknown]
  - Seizure [Recovering/Resolving]
  - Tonsillar hypertrophy [Unknown]
  - Hepatic failure [Unknown]
  - Somnolence [Unknown]
  - Muscular weakness [Unknown]
  - Decreased appetite [Unknown]
  - Chromaturia [Unknown]
  - Encephalomalacia [Unknown]
  - Lymphadenopathy [Unknown]
